FAERS Safety Report 7886955-1 (Version None)
Quarter: 2011Q4

REPORT INFORMATION
  Report Type: 
  Country: None (occurrence: None)
  Receive Date: 20111102
  Receipt Date: 20110713
  Transmission Date: 20120403
  Serious: No
  Sender: FDA-Public Use
  Company Number: US-AMGEN-USASP2011035601

PATIENT
  Age: 43 Year
  Sex: Female

DRUGS (1)
  1. ENBREL [Suspect]
     Indication: RHEUMATOID ARTHRITIS
     Dosage: 25 MG, 2 TIMES/WK
     Dates: start: 20110705

REACTIONS (7)
  - MUSCULOSKELETAL PAIN [None]
  - NAUSEA [None]
  - HEADACHE [None]
  - RHINORRHOEA [None]
  - VULVOVAGINAL DRYNESS [None]
  - PAIN IN EXTREMITY [None]
  - LIBIDO DECREASED [None]
